FAERS Safety Report 9665498 (Version 2)
Quarter: 2013Q4

REPORT INFORMATION
  Report Type: Spontaneous
  Country: US (occurrence: US)
  Receive Date: 20131104
  Receipt Date: 20131210
  Transmission Date: 20140711
  Serious: No
  Sender: FDA-Public Use
  Company Number: US-PFIZER INC-2013310210

PATIENT
  Age: 51 Year
  Sex: Female

DRUGS (2)
  1. FLAGYL [Suspect]
     Dosage: UNK
  2. CLEOCIN [Suspect]
     Dosage: UNK

REACTIONS (2)
  - Drug hypersensitivity [Unknown]
  - Rubber sensitivity [Unknown]
